FAERS Safety Report 11980804 (Version 1)
Quarter: 2016Q1

REPORT INFORMATION
  Report Type: Spontaneous
  Country: DE (occurrence: DE)
  Receive Date: 20160129
  Receipt Date: 20160129
  Transmission Date: 20160526
  Serious: Yes (Other)
  Sender: FDA-Public Use
  Company Number: DE-TEVA-626895GER

PATIENT
  Age: 66 Year
  Sex: Male

DRUGS (1)
  1. FLUCONAZOL-RATIOPHARM 150 MG HARTKAPSELN [Suspect]
     Active Substance: FLUCONAZOLE
     Indication: WOUND INFECTION FUNGAL
     Dosage: ALREADY FOR A LONGER TIME
     Dates: end: 20160118

REACTIONS (5)
  - Blood bilirubin increased [Unknown]
  - Alanine aminotransferase increased [Unknown]
  - Aspartate aminotransferase increased [Unknown]
  - Gamma-glutamyltransferase increased [Unknown]
  - Blood alkaline phosphatase increased [Unknown]

NARRATIVE: CASE EVENT DATE: 20160119
